FAERS Safety Report 8465010-6 (Version None)
Quarter: 2012Q2

REPORT INFORMATION
  Report Type: 
  Country: None (occurrence: None)
  Receive Date: 20120618
  Receipt Date: 20120507
  Transmission Date: 20120825
  Serious: Yes (Death, Other)
  Sender: FDA-Public Use
  Company Number: 2012P1023645

PATIENT
  Age: 23 Year
  Sex: Male
  Weight: 65 kg

DRUGS (2)
  1. NAPROXEN [Concomitant]
  2. HYDROMORPHONE HCL [Suspect]
     Indication: PAIN
     Dosage: 2 MG;QH;PRN;IV
     Route: 042

REACTIONS (7)
  - RESPIRATORY ARREST [None]
  - INCORRECT DOSE ADMINISTERED [None]
  - PULSE ABSENT [None]
  - MEDICATION ERROR [None]
  - UNRESPONSIVE TO STIMULI [None]
  - BRAIN DEATH [None]
  - SNORING [None]
